FAERS Safety Report 8853810 (Version 2)
Quarter: 2012Q4

REPORT INFORMATION
  Report Type: 
  Country: FR (occurrence: FR)
  Receive Date: 20121022
  Receipt Date: 20121108
  Transmission Date: 20130627
  Serious: Yes (Hospitalization, Other)
  Sender: FDA-Public Use
  Company Number: FR-JNJFOC-20121007789

PATIENT
  Age: 38 Year
  Sex: Male
  Weight: 75 kg

DRUGS (38)
  1. REMICADE [Suspect]
     Indication: CROHN^S DISEASE
     Route: 042
     Dates: start: 200610, end: 200702
  2. REMICADE [Suspect]
     Indication: CROHN^S DISEASE
     Route: 042
     Dates: start: 200203, end: 2004
  3. REMICADE [Suspect]
     Indication: CROHN^S DISEASE
     Route: 042
     Dates: start: 200704
  4. REMICADE [Suspect]
     Indication: CROHN^S DISEASE
     Route: 042
     Dates: start: 200508
  5. REMICADE [Suspect]
     Indication: ANKYLOSING SPONDYLITIS
     Route: 042
     Dates: start: 200610, end: 200702
  6. REMICADE [Suspect]
     Indication: ANKYLOSING SPONDYLITIS
     Route: 042
     Dates: start: 200704
  7. REMICADE [Suspect]
     Indication: ANKYLOSING SPONDYLITIS
     Route: 042
     Dates: start: 200508
  8. REMICADE [Suspect]
     Indication: ANKYLOSING SPONDYLITIS
     Route: 042
     Dates: start: 200203, end: 2004
  9. HUMIRA [Suspect]
     Indication: CROHN^S DISEASE
     Dosage: every 2 weeks, then every week
     Route: 058
     Dates: start: 200605, end: 200610
  10. HUMIRA [Suspect]
     Indication: ANKYLOSING SPONDYLITIS
     Dosage: every 2 weeks, then every week
     Route: 058
     Dates: start: 200605, end: 200610
  11. ZOXON [Concomitant]
     Route: 065
  12. SKENAN [Concomitant]
     Route: 065
  13. INEXIUM [Concomitant]
     Route: 065
  14. HALDOL [Concomitant]
     Route: 065
  15. VALIUM [Concomitant]
     Route: 065
  16. LARGACTIL [Concomitant]
     Route: 065
  17. FIVASA [Concomitant]
     Route: 065
  18. IMUREL [Concomitant]
     Route: 065
     Dates: start: 200508
  19. METHOTREXATE [Concomitant]
     Route: 065
     Dates: start: 200610, end: 200611
  20. METHOTREXATE [Concomitant]
     Route: 065
     Dates: start: 1999
  21. PURINETHOL [Concomitant]
     Route: 065
     Dates: start: 2006, end: 2008
  22. NSAID^S [Concomitant]
     Indication: CROHN^S DISEASE
     Route: 065
     Dates: start: 2006
  23. NSAID^S [Concomitant]
     Indication: CROHN^S DISEASE
     Route: 065
     Dates: start: 1999
  24. NSAID^S [Concomitant]
     Indication: ANKYLOSING SPONDYLITIS
     Route: 065
     Dates: start: 1999
  25. NSAID^S [Concomitant]
     Indication: ANKYLOSING SPONDYLITIS
     Route: 065
     Dates: start: 2006
  26. PENTASA [Concomitant]
     Indication: ANKYLOSING SPONDYLITIS
     Route: 065
     Dates: start: 2006
  27. PENTASA [Concomitant]
     Indication: ANKYLOSING SPONDYLITIS
     Route: 065
     Dates: start: 1999
  28. PENTASA [Concomitant]
     Indication: CROHN^S DISEASE
     Route: 065
     Dates: start: 2006
  29. PENTASA [Concomitant]
     Indication: CROHN^S DISEASE
     Route: 065
     Dates: start: 1999
  30. SALAZOPYRINE [Concomitant]
     Indication: ANKYLOSING SPONDYLITIS
     Route: 065
     Dates: start: 1999
  31. SALAZOPYRINE [Concomitant]
     Indication: ANKYLOSING SPONDYLITIS
     Route: 065
     Dates: start: 2006
  32. CORTANCYL [Concomitant]
     Indication: ANKYLOSING SPONDYLITIS
     Route: 065
     Dates: start: 1999
  33. CORTANCYL [Concomitant]
     Indication: ANKYLOSING SPONDYLITIS
     Route: 065
     Dates: start: 2006
  34. ENTOCORT [Concomitant]
     Indication: CROHN^S DISEASE
     Route: 065
     Dates: start: 2006
  35. ENTOCORT [Concomitant]
     Indication: CROHN^S DISEASE
     Route: 065
     Dates: start: 1999
  36. ENTOCORT [Concomitant]
     Indication: ANKYLOSING SPONDYLITIS
     Route: 065
     Dates: start: 1999
  37. ENTOCORT [Concomitant]
     Indication: ANKYLOSING SPONDYLITIS
     Route: 065
     Dates: start: 2006
  38. IMUREL [Concomitant]
     Route: 065
     Dates: end: 2005

REACTIONS (3)
  - Neuropathy peripheral [Not Recovered/Not Resolved]
  - Tonsillitis [Unknown]
  - Drug ineffective [Unknown]
